FAERS Safety Report 8889243 (Version 1)
Quarter: 2012Q4

REPORT INFORMATION
  Report Type: 
  Country: IT (occurrence: IT)
  Receive Date: 20121106
  Receipt Date: 20121106
  Transmission Date: 20130627
  Serious: Yes (Hospitalization)
  Sender: FDA-Public Use
  Company Number: IT-TEVA-366667ISR

PATIENT
  Age: 44 Year
  Sex: Female

DRUGS (2)
  1. CARBAMAZEPINE [Suspect]
     Indication: EPILEPSY
     Dosage: 200 Milligram Daily;
     Route: 048
     Dates: start: 20120507, end: 20120527
  2. TRIMETON [Concomitant]

REACTIONS (13)
  - Drug reaction with eosinophilia and systemic symptoms [Recovered/Resolved]
  - Erythema [Recovered/Resolved]
  - Pyrexia [Recovered/Resolved]
  - Lymphadenopathy [Recovered/Resolved]
  - Eosinophilia [None]
  - Hypogammaglobulinaemia [None]
  - Blood lactate dehydrogenase increased [None]
  - Aspartate aminotransferase increased [None]
  - Alanine aminotransferase increased [None]
  - Leukopenia [None]
  - Febrile neutropenia [None]
  - Chills [None]
  - Bacterial sepsis [None]
